FAERS Safety Report 26038840 (Version 1)
Quarter: 2025Q4

REPORT INFORMATION
  Report Type: Spontaneous
  Country: US (occurrence: US)
  Receive Date: 20251113
  Receipt Date: 20251113
  Transmission Date: 20260117
  Serious: Yes (Other)
  Sender: ALEXION PHARMACEUTICALS
  Company Number: US-ASTRAZENECA-202511NAM005300US

PATIENT
  Age: 50 Year
  Sex: Female

DRUGS (4)
  1. FULVESTRANT [Suspect]
     Active Substance: FULVESTRANT
     Dosage: UNK, QMONTH
     Route: 065
  2. FULVESTRANT [Suspect]
     Active Substance: FULVESTRANT
  3. KISQALI [Concomitant]
     Active Substance: RIBOCICLIB SUCCINATE
     Dosage: 400 MILLIGRAM, QD
     Route: 065
  4. ZOMETA [Concomitant]
     Active Substance: ZOLEDRONIC ACID
     Dosage: UNK UNK, EVERY 3 MONTHS
     Route: 065

REACTIONS (2)
  - Breast mass [Unknown]
  - Breast cancer metastatic [Unknown]
